FAERS Safety Report 4716620-0 (Version None)
Quarter: 2005Q3

REPORT INFORMATION
  Report Type: 
  Country: None (occurrence: None)
  Receive Date: 20050718
  Receipt Date: 20050706
  Transmission Date: 20060218
  Serious: Yes (Life-Threatening)
  Sender: FDA-Public Use
  Company Number: 05-07-1172

PATIENT
  Age: 73 Year
  Sex: Female

DRUGS (2)
  1. QUININE SULFATE [Suspect]
     Indication: MUSCLE SPASMS
     Dosage: 300MG ORAL
     Route: 048
  2. MIXTARD 20 UNITS BD [Concomitant]

REACTIONS (1)
  - UNEVALUABLE EVENT [None]
